FAERS Safety Report 8814622 (Version 1)
Quarter: 2012Q4

REPORT INFORMATION
  Report Type: Spontaneous
  Country: JP (occurrence: None)
  Receive Date: 20120926
  Receipt Date: 20120926
  Transmission Date: 20130627
  Serious: Yes (Other)
  Sender: FDA-Public Use
  Company Number: AXC-2012-000420

PATIENT
  Age: 50 Year
  Sex: Male

DRUGS (3)
  1. URSODEOXYCHOLIC ACID [Suspect]
     Indication: HEPATOPATHY ALCOHOLIC
     Route: 048
  2. URSODEOXYCHOLIC ACID [Suspect]
     Indication: HEPATOPATHY ALCOHOLIC
     Dosage: 100 mg, tid after meals, Oral
     Route: 048
     Dates: start: 20120515, end: 20120801
  3. ALLOPURINOL [Suspect]
     Indication: DRUG USE FOR UNKNOWN INDICATION
     Dosage: 100 mg, qd, in the morning, Oral
     Route: 048
     Dates: start: 20120427, end: 20120801

REACTIONS (5)
  - Anaemia [None]
  - White blood cell count decreased [None]
  - Platelet count decreased [None]
  - Bone marrow failure [None]
  - Myelodysplastic syndrome [None]
